FAERS Safety Report 8347712-5 (Version None)
Quarter: 2012Q2

REPORT INFORMATION
  Report Type: 
  Country: None (occurrence: None)
  Receive Date: 20120509
  Receipt Date: 20120507
  Transmission Date: 20120825
  Serious: Yes (Death)
  Sender: FDA-Public Use
  Company Number: US-CELGENEUS-163-21880-11111175

PATIENT
  Sex: Male

DRUGS (1)
  1. REVLIMID [Suspect]
     Dosage: 10 MILLIGRAM
     Route: 048
     Dates: start: 20110727, end: 20110802

REACTIONS (5)
  - RASH [None]
  - PRURITUS [None]
  - LYMPHOCYTIC LEUKAEMIA [None]
  - HEADACHE [None]
  - DISEASE PROGRESSION [None]
